FAERS Safety Report 26210108 (Version 2)
Quarter: 2025Q4

REPORT INFORMATION
  Report Type: Spontaneous
  Country: EU (occurrence: EU)
  Receive Date: 20251229
  Receipt Date: 20251230
  Transmission Date: 20260118
  Serious: Yes (Other)
  Sender: PFIZER
  Company Number: EU-PFIZER INC-PV202500148929

PATIENT
  Age: 61 Year
  Sex: Male

DRUGS (1)
  1. EPIRUBICIN HYDROCHLORIDE [Suspect]
     Active Substance: EPIRUBICIN HYDROCHLORIDE
     Indication: Bladder transitional cell carcinoma
     Dosage: 40 MG, SINGLE
     Route: 043

REACTIONS (1)
  - Urinary bladder rupture [Recovered/Resolved]
